FAERS Safety Report 8160378-2 (Version None)
Quarter: 2012Q1

REPORT INFORMATION
  Report Type: 
  Country: None (occurrence: None)
  Receive Date: 20120223
  Receipt Date: 20120221
  Transmission Date: 20120608
  Serious: No
  Sender: FDA-Public Use
  Company Number: JP-BRACCO-005678

PATIENT
  Age: 71 Year
  Sex: Male

DRUGS (3)
  1. EPIRUBICIN HYDROCHLORIDE [Suspect]
  2. MITOMYCIN [Suspect]
  3. LIPIODOL ULTRA-FLUIDE [Suspect]

REACTIONS (2)
  - SKIN ULCER [None]
  - OFF LABEL USE [None]
